FAERS Safety Report 5133245-6 (Version None)
Quarter: 2006Q4

REPORT INFORMATION
  Report Type: 
  Country: None (occurrence: None)
  Receive Date: 20061018
  Receipt Date: 20061005
  Transmission Date: 20070319
  Serious: Yes (Hospitalization)
  Sender: FDA-Public Use
  Company Number: 2006107589

PATIENT
  Age: 84 Year
  Sex: Female

DRUGS (9)
  1. SUTENT [Suspect]
     Indication: METASTATIC RENAL CELL CARCINOMA
     Dosage: ORAL
     Route: 048
     Dates: start: 20060803
  2. RISEDRONATE (RISEDRONIC ACID) [Concomitant]
  3. ACETYLCYSTEINE [Concomitant]
  4. OXAZEPAM [Concomitant]
  5. METOPROLOL TARTRATE [Concomitant]
  6. GABAPENTIN [Concomitant]
  7. FUROSEMIDE [Concomitant]
  8. PANTOPRAZOLE SODIUM [Concomitant]
  9. OXYCONTIN [Concomitant]

REACTIONS (4)
  - COGNITIVE DISORDER [None]
  - CONFUSIONAL STATE [None]
  - GAIT DISTURBANCE [None]
  - ISCHAEMIC STROKE [None]
